FAERS Safety Report 4752830-4 (Version None)
Quarter: 2005Q3

REPORT INFORMATION
  Report Type: 
  Country: None (occurrence: None)
  Receive Date: 20050714
  Receipt Date: 20041022
  Transmission Date: 20060218
  Serious: Yes (Hospitalization)
  Sender: FDA-Public Use
  Company Number: 200418149US

PATIENT
  Sex: Female

DRUGS (4)
  1. TAXOTERE [Suspect]
     Indication: BREAST CANCER
  2. PANTOPRAZOLE SODIUM [Concomitant]
  3. MAGNESIUM HYDROXIDE TAB [Concomitant]
  4. ALUMINIUM HYDROXIDE GEL (MAALOX) [Concomitant]

REACTIONS (2)
  - ABDOMINAL PAIN [None]
  - RASH [None]
